FAERS Safety Report 21086281 (Version 1)
Quarter: 2022Q3

REPORT INFORMATION
  Report Type: Spontaneous
  Country: ES (occurrence: ES)
  Receive Date: 20220715
  Receipt Date: 20220715
  Transmission Date: 20221027
  Serious: Yes (Other)
  Sender: FDA-Public Use
  Company Number: None

PATIENT
  Age: 81 Year
  Sex: Male

DRUGS (2)
  1. OZEMPIC [Suspect]
     Active Substance: SEMAGLUTIDE
     Indication: Diabetes mellitus
     Dosage: 1 DF, QW
     Dates: start: 20201127, end: 20210224
  2. TRULICITY [Suspect]
     Active Substance: DULAGLUTIDE
     Indication: Diabetic vascular disorder
     Dosage: 1 DF, QW
     Dates: start: 20210323, end: 20210331

REACTIONS (1)
  - Iridocyclitis [Recovering/Resolving]

NARRATIVE: CASE EVENT DATE: 20210330
